FAERS Safety Report 16479674 (Version 1)
Quarter: 2019Q2

REPORT INFORMATION
  Report Type: Spontaneous
  Country: PL (occurrence: PL)
  Receive Date: 20190626
  Receipt Date: 20190626
  Transmission Date: 20190711
  Serious: Yes (Hospitalization, Other)
  Sender: FDA-Public Use
  Company Number: PHHY2019PL131281

PATIENT
  Age: 49 Year
  Sex: Male

DRUGS (3)
  1. INFLIXIMAB [Suspect]
     Active Substance: INFLIXIMAB
     Indication: COLITIS ULCERATIVE
     Dosage: UNK
     Route: 065
  2. PREDNISONE. [Suspect]
     Active Substance: PREDNISONE
     Indication: COLITIS ULCERATIVE
     Dosage: UNK
     Route: 065
  3. MESALAZINE [Suspect]
     Active Substance: MESALAMINE
     Indication: COLITIS ULCERATIVE
     Dosage: UNK
     Route: 065

REACTIONS (10)
  - Rectal tenesmus [Unknown]
  - Colitis ulcerative [Unknown]
  - Septic shock [Unknown]
  - Clostridium test positive [Unknown]
  - Off label use [Unknown]
  - Clostridium difficile infection [Unknown]
  - Asthenia [Unknown]
  - Anaemia [Unknown]
  - Diarrhoea [Unknown]
  - Drug ineffective [Unknown]
